FAERS Safety Report 15151696 (Version 1)
Quarter: 2020Q3

REPORT INFORMATION
  Report Type: Spontaneous
  Country: FR (occurrence: FR)
  Receive Date: 20180716
  Receipt Date: 20180716
  Transmission Date: 20201104
  Serious: Yes (Hospitalization)
  Sender: FDA-Public Use
  Company Number: PHHY2018FR038531

PATIENT
  Age: 55 Year
  Sex: Male

DRUGS (5)
  1. AMIKACIN. [Suspect]
     Active Substance: AMIKACIN
     Indication: POST PROCEDURAL SEPSIS
     Dosage: UNK
     Route: 065
  2. TAZOCILLINE [Suspect]
     Active Substance: PIPERACILLIN SODIUM\TAZOBACTAM SODIUM
     Indication: POST PROCEDURAL SEPSIS
     Dosage: 4 DF, UNK
     Route: 042
  3. VANCOMYCIN [Suspect]
     Active Substance: VANCOMYCIN
     Indication: POST PROCEDURAL SEPSIS
     Dosage: 2000 MG, UNK
     Route: 065
  4. CANCIDAS [Suspect]
     Active Substance: CASPOFUNGIN ACETATE
     Indication: POST PROCEDURAL SEPSIS
     Dosage: 1 DF, UNK
     Route: 042
  5. MEROPENEM. [Suspect]
     Active Substance: MEROPENEM
     Indication: POST PROCEDURAL SEPSIS
     Dosage: 6 G, UNK
     Route: 042

REACTIONS (2)
  - Blood creatinine increased [Recovered/Resolved]
  - Haematuria [Recovered/Resolved]

NARRATIVE: CASE EVENT DATE: 20180117
